FAERS Safety Report 25574708 (Version 1)
Quarter: 2025Q3

REPORT INFORMATION
  Report Type: Spontaneous
  Country: TH (occurrence: TH)
  Receive Date: 20250718
  Receipt Date: 20250718
  Transmission Date: 20251021
  Serious: Yes (Hospitalization, Other)
  Sender: NOVITIUM PHARMA
  Company Number: TH-NOVITIUMPHARMA-2025THNVP01614

PATIENT
  Age: 64 Year
  Sex: Female

DRUGS (6)
  1. LEVOFLOXACIN [Suspect]
     Active Substance: LEVOFLOXACIN
     Indication: Spondylitis
  2. PYRAZINAMIDE [Suspect]
     Active Substance: PYRAZINAMIDE
     Indication: Spondylitis
  3. ISONIAZID [Concomitant]
     Active Substance: ISONIAZID
  4. RIFAMPIN [Concomitant]
     Active Substance: RIFAMPIN
  5. ETHAMBUTOL [Concomitant]
     Active Substance: ETHAMBUTOL HYDROCHLORIDE
  6. AMIKACIN [Concomitant]
     Active Substance: AMIKACIN
     Route: 042

REACTIONS (3)
  - Crystal nephropathy [Recovered/Resolved]
  - Acute kidney injury [Recovered/Resolved]
  - Hepatitis cholestatic [Recovered/Resolved]
